FAERS Safety Report 14484815 (Version 1)
Quarter: 2018Q1

REPORT INFORMATION
  Report Type: Spontaneous
  Country: GB (occurrence: GB)
  Receive Date: 20180205
  Receipt Date: 20180205
  Transmission Date: 20180509
  Serious: Yes (Other)
  Sender: FDA-Public Use
  Company Number: GB-KRKA, D.D., NOVO MESTO-2041385

PATIENT
  Age: 35 Year
  Sex: Female

DRUGS (9)
  1. LANSOPRAZOLE. [Suspect]
     Active Substance: LANSOPRAZOLE
     Route: 048
  2. METHYLPREDNISOLONE. [Concomitant]
     Active Substance: METHYLPREDNISOLONE
     Route: 042
  3. CODEINE SULFATE. [Concomitant]
     Active Substance: CODEINE SULFATE
     Route: 065
  4. LEMTRADA [Suspect]
     Active Substance: ALEMTUZUMAB
     Route: 041
  5. COTRIMOXAZOLE [Concomitant]
     Active Substance: SULFAMETHOXAZOLE\TRIMETHOPRIM
     Route: 048
  6. CYCLIZINE [Concomitant]
     Active Substance: CYCLIZINE
     Route: 065
  7. PARACETAMOL [Suspect]
     Active Substance: ACETAMINOPHEN
     Route: 065
  8. ACYCLOVIR. [Concomitant]
     Active Substance: ACYCLOVIR
     Route: 048
  9. CHLORPHENAMINE [Concomitant]
     Active Substance: CHLORPHENIRAMINE MALEATE
     Route: 042

REACTIONS (11)
  - Abdominal pain [Recovered/Resolved]
  - Fatigue [Unknown]
  - Chest discomfort [Recovered/Resolved]
  - Band sensation [Recovered/Resolved]
  - Dizziness [Recovered/Resolved]
  - Rash [Unknown]
  - Multiple sclerosis relapse [Recovered/Resolved]
  - Nausea [Recovered/Resolved]
  - Muscle spasms [Recovered/Resolved]
  - Migraine [Not Recovered/Not Resolved]
  - Insomnia [Unknown]

NARRATIVE: CASE EVENT DATE: 20180116
